FAERS Safety Report 5256309-5 (Version None)
Quarter: 2007Q1

REPORT INFORMATION
  Report Type: 
  Country: None (occurrence: None)
  Receive Date: 20070306
  Receipt Date: 20070228
  Transmission Date: 20070707
  Serious: Yes (Hospitalization)
  Sender: FDA-Public Use
  Company Number: JP-BRISTOL-MYERS SQUIBB COMPANY-13585922

PATIENT
  Age: 49 Year
  Sex: Male

DRUGS (7)
  1. BARACLUDE [Suspect]
     Indication: HEPATITIS B
     Route: 048
     Dates: start: 20060925, end: 20061011
  2. DIFLUCAN [Concomitant]
  3. MUCOSTA [Concomitant]
     Route: 048
  4. NEO-MINOPHAGEN C [Concomitant]
     Route: 042
  5. BAKTAR [Concomitant]
     Route: 048
  6. LENDORMIN [Concomitant]
     Route: 048
  7. RITUXAN [Concomitant]
     Route: 041
     Dates: start: 20060711, end: 20061003

REACTIONS (1)
  - LIVER DISORDER [None]
